FAERS Safety Report 4552512-8 (Version None)
Quarter: 2005Q1

REPORT INFORMATION
  Report Type: 
  Country: None (occurrence: None)
  Receive Date: 20050114
  Receipt Date: 20040629
  Transmission Date: 20050727
  Serious: No
  Sender: FDA-Public Use
  Company Number: US-GLAXOSMITHKLINE-A0516711A

PATIENT
  Age: 20 Year
  Sex: Female

DRUGS (3)
  1. IMITREX [Suspect]
     Indication: HEADACHE
     Route: 058
     Dates: start: 20040629, end: 20040629
  2. WELLBUTRIN [Concomitant]
  3. AMITRIPTYLINE [Concomitant]

REACTIONS (3)
  - DRUG INEFFECTIVE [None]
  - HEADACHE [None]
  - NAUSEA [None]
